FAERS Safety Report 6981323-9 (Version None)
Quarter: 2010Q3

REPORT INFORMATION
  Report Type: 
  Country: None (occurrence: None)
  Receive Date: 20100914
  Receipt Date: 20100908
  Transmission Date: 20110219
  Serious: Yes (Other)
  Sender: FDA-Public Use
  Company Number: US-NAPPMUNDI-USA-2010-0046613

PATIENT
  Sex: Female

DRUGS (1)
  1. OXYCONTIN [Suspect]
     Indication: PRODUCT USED FOR UNKNOWN INDICATION
     Dosage: 80 MG, Q12H
     Dates: start: 20100904

REACTIONS (5)
  - CHOKING [None]
  - COUGH [None]
  - DRY THROAT [None]
  - PRURITUS GENERALISED [None]
  - SENSATION OF FOREIGN BODY [None]
